FAERS Safety Report 8158170-8 (Version None)
Quarter: 2012Q1

REPORT INFORMATION
  Report Type: 
  Country: None (occurrence: None)
  Receive Date: 20120222
  Receipt Date: 20120215
  Transmission Date: 20120608
  Serious: Yes (Other)
  Sender: FDA-Public Use
  Company Number: JP-ASTRAZENECA-2012SE11227

PATIENT
  Age: 84 Year
  Sex: Female

DRUGS (4)
  1. MEROPENEM [Suspect]
     Route: 042
  2. CLINDAMYCIN HCL [Suspect]
     Route: 065
  3. CEFTAZIDIME SODIUM [Suspect]
     Route: 042
  4. ZOSYN [Suspect]
     Route: 042

REACTIONS (1)
  - INTERSTITIAL LUNG DISEASE [None]
